FAERS Safety Report 7060295-5 (Version None)
Quarter: 2010Q4

REPORT INFORMATION
  Report Type: 
  Country: None (occurrence: None)
  Receive Date: 20101025
  Receipt Date: 20101020
  Transmission Date: 20110411
  Serious: Yes (Other)
  Sender: FDA-Public Use
  Company Number: A0800195A

PATIENT
  Age: 55 Year
  Sex: Male
  Weight: 68.6 kg

DRUGS (1)
  1. AVANDIA [Suspect]
     Indication: DIABETES MELLITUS
     Dosage: 4MG PER DAY
     Route: 048
     Dates: start: 20030101, end: 20070101

REACTIONS (6)
  - ABDOMINAL PAIN UPPER [None]
  - BLINDNESS [None]
  - GASTROOESOPHAGEAL REFLUX DISEASE [None]
  - HELICOBACTER INFECTION [None]
  - NIGHT BLINDNESS [None]
  - VISION BLURRED [None]
